FAERS Safety Report 6035025-6 (Version None)
Quarter: 2009Q1

REPORT INFORMATION
  Report Type: 
  Country: None (occurrence: None)
  Receive Date: 20090109
  Receipt Date: 20090109
  Transmission Date: 20090719
  Serious: Yes (Life-Threatening, Other)
  Sender: FDA-Public Use
  Company Number: None

PATIENT
  Age: 61 Year
  Sex: Male
  Weight: 104.3273 kg

DRUGS (2)
  1. PERCODAN [Suspect]
     Indication: BACK PAIN
     Dosage: ONE TABLET TWICE DAILY PO
     Route: 048
     Dates: start: 20081201, end: 20081231
  2. PERCODAN [Suspect]
     Indication: PAIN IN EXTREMITY
     Dosage: ONE TABLET TWICE DAILY PO
     Route: 048
     Dates: start: 20081201, end: 20081231

REACTIONS (5)
  - DRUG DEPENDENCE [None]
  - DRUG INEFFECTIVE [None]
  - PRODUCT QUALITY ISSUE [None]
  - PRURITUS [None]
  - VISION BLURRED [None]
